FAERS Safety Report 4303453-2 (Version None)
Quarter: 2004Q1

REPORT INFORMATION
  Report Type: 
  Country: None (occurrence: None)
  Receive Date: 20040223
  Receipt Date: 20040218
  Transmission Date: 20041129
  Serious: Yes (Other)
  Sender: FDA-Public Use
  Company Number: 2004-02-1262

PATIENT
  Age: 70 Year
  Sex: Female

DRUGS (1)
  1. CLARITIN [Suspect]
     Dosage: 10 MG QD ORAL
     Route: 048
     Dates: start: 20040210, end: 20040211

REACTIONS (1)
  - DEAFNESS [None]
